FAERS Safety Report 7462114-1 (Version None)
Quarter: 2011Q2

REPORT INFORMATION
  Report Type: 
  Country: None (occurrence: None)
  Receive Date: 20110506
  Receipt Date: 20110425
  Transmission Date: 20111010
  Serious: Yes (Hospitalization)
  Sender: FDA-Public Use
  Company Number: US-SANOFI-AVENTIS-2011SA025932

PATIENT
  Age: 47 Year
  Sex: Male

DRUGS (13)
  1. SIMVASTATIN [Concomitant]
  2. AMLODIPINE BESYLATE [Concomitant]
  3. FLUTICASONE/SALMETEROL [Concomitant]
  4. ASPIRIN [Concomitant]
  5. NAPROXEN [Concomitant]
     Indication: SYSTEMIC LUPUS ERYTHEMATOSUS
  6. ALBUTEROL [Concomitant]
     Dosage: METERED DOSE INHALERS
  7. TEMAZ [Concomitant]
  8. CALCITRIOL [Concomitant]
  9. CALCIUM [Concomitant]
  10. PREDNISONE [Concomitant]
  11. HYDROXYCHLOROQUINE SULFATE [Suspect]
     Indication: SYSTEMIC LUPUS ERYTHEMATOSUS
     Route: 065
  12. HYDROXYCHLOROQUINE SULFATE [Suspect]
     Route: 065
  13. MYCOPHENOLATE MOFETIL [Concomitant]

REACTIONS (12)
  - ELECTROCARDIOGRAM QT PROLONGED [None]
  - CARDIAC FAILURE [None]
  - PAIN IN EXTREMITY [None]
  - DYSPNOEA [None]
  - CARDIOMYOPATHY [None]
  - CARDIAC ARREST [None]
  - ORTHOPNOEA [None]
  - HYPOTENSION [None]
  - VENTRICULAR TACHYCARDIA [None]
  - TORSADE DE POINTES [None]
  - ELECTROCARDIOGRAM ST SEGMENT ELEVATION [None]
  - HYPOXIA [None]
